FAERS Safety Report 9306588 (Version 1)
Quarter: 2013Q2

REPORT INFORMATION
  Report Type: Spontaneous
  Country: US (occurrence: US)
  Receive Date: 20130523
  Receipt Date: 20130523
  Transmission Date: 20140414
  Serious: Yes (Hospitalization)
  Sender: FDA-Public Use
  Company Number: US-AMGEN-USASP2013036473

PATIENT
  Age: 65 Year
  Sex: Female

DRUGS (2)
  1. ENBREL [Suspect]
     Indication: RHEUMATOID ARTHRITIS
     Dosage: 50 MG, QWK
     Dates: start: 20030312
  2. METHOTREXATE [Concomitant]
     Dosage: 15 MG, QWK

REACTIONS (2)
  - Knee arthroplasty [Recovered/Resolved]
  - Nasopharyngitis [Not Recovered/Not Resolved]
